FAERS Safety Report 8498873-9 (Version None)
Quarter: 2012Q3

REPORT INFORMATION
  Report Type: 
  Country: None (occurrence: None)
  Receive Date: 20120710
  Receipt Date: 20120627
  Transmission Date: 20120928
  Serious: No
  Sender: FDA-Public Use
  Company Number: US-BIOGENIDEC-2012BI020282

PATIENT
  Age: 64 Year
  Sex: Male

DRUGS (1)
  1. TYSABRI [Suspect]
     Indication: MULTIPLE SCLEROSIS
     Route: 042
     Dates: start: 20120515, end: 20120515

REACTIONS (5)
  - MOBILITY DECREASED [None]
  - CONFUSIONAL STATE [None]
  - COORDINATION ABNORMAL [None]
  - MEMORY IMPAIRMENT [None]
  - URINARY TRACT INFECTION [None]
